FAERS Safety Report 8622145-2 (Version None)
Quarter: 2012Q3

REPORT INFORMATION
  Report Type: 
  Country: None (occurrence: None)
  Receive Date: 20120826
  Receipt Date: 20120530
  Transmission Date: 20120928
  Serious: Yes (Other)
  Sender: FDA-Public Use
  Company Number: PHHY2011AU116317

PATIENT
  Sex: Female

DRUGS (10)
  1. ALVEN [Concomitant]
     Indication: ANXIETY
     Dosage: 1 MG AS REQUIRED
     Route: 048
  2. VENTOLIN [Concomitant]
     Indication: ASTHMA
  3. VITAMIN B-12 [Concomitant]
     Indication: VITAMIN B12 DEFICIENCY
     Route: 030
  4. VAGITEN [Concomitant]
     Indication: ATROPHY
  5. ZOLEDRONOC ACID [Suspect]
     Dosage: 5 MG, UNK
     Route: 042
     Dates: start: 20090813
  6. COVERSYL PLUS [Concomitant]
     Indication: HYPERTENSION
     Dosage: 571.25 MG, UNK
  7. FLUTICASONE PROPIONATE [Concomitant]
     Indication: ASTHMA
  8. SPIRIVA [Concomitant]
     Indication: CHRONIC OBSTRUCTIVE PULMONARY DISEASE
  9. CALMODULIN [Concomitant]
     Indication: ATRIAL FIBRILLATION
     Route: 048
  10. RABEPRAZOLE SODIUM [Concomitant]
     Indication: GASTROOESOPHAGEAL REFLUX DISEASE
     Dosage: 20 MG ONCE DAILY

REACTIONS (2)
  - MALAISE [None]
  - UPPER LIMB FRACTURE [None]
